FAERS Safety Report 7875583-X (Version None)
Quarter: 2011Q4

REPORT INFORMATION
  Report Type: 
  Country: None (occurrence: None)
  Receive Date: 20111031
  Receipt Date: 20111017
  Transmission Date: 20120403
  Serious: Yes (Other)
  Sender: FDA-Public Use
  Company Number: US-ELI_LILLY_AND_COMPANY-US201109002600

PATIENT
  Sex: Male

DRUGS (13)
  1. MORPHINE SULFATE [Concomitant]
  2. CLONIDINE [Concomitant]
  3. SERTRALINE HYDROCHLORIDE [Concomitant]
  4. ATENOLOL [Concomitant]
  5. ALPRAZOLAM [Concomitant]
  6. NUCYNTA [Concomitant]
  7. CYCLOPHOSPHAMIDE [Concomitant]
  8. LYRICA [Concomitant]
  9. ZANAFLEX [Concomitant]
  10. LISINOPRIL [Concomitant]
  11. FORTEO [Suspect]
     Indication: SPINAL FUSION SURGERY
     Dosage: 20 UG, QD
     Route: 065
     Dates: start: 20110201, end: 20110801
  12. BUPROPION-RL [Concomitant]
  13. CHANTIX [Concomitant]

REACTIONS (7)
  - OSTEONECROSIS OF JAW [None]
  - LIGAMENT DISORDER [None]
  - WOUND DEHISCENCE [None]
  - GINGIVAL EROSION [None]
  - BONE FRAGMENTATION [None]
  - GINGIVAL INFECTION [None]
  - PAIN IN EXTREMITY [None]
